FAERS Safety Report 25310655 (Version 1)
Quarter: 2025Q2

REPORT INFORMATION
  Report Type: Spontaneous
  Country: SE (occurrence: SE)
  Receive Date: 20250514
  Receipt Date: 20250514
  Transmission Date: 20250716
  Serious: Yes (Hospitalization)
  Sender: TEVA
  Company Number: None

PATIENT
  Age: 56 Year
  Sex: Female

DRUGS (7)
  1. LOSARTAN [Suspect]
     Active Substance: LOSARTAN
     Indication: Product used for unknown indication
     Dosage: LOSARTAN TEVA
     Route: 065
  2. VELTASSA [Suspect]
     Active Substance: PATIROMER
     Indication: Product used for unknown indication
     Route: 065
  3. LERCANIDIPINE [Suspect]
     Active Substance: LERCANIDIPINE
     Indication: Product used for unknown indication
     Dosage: LERCANIDIPINE ACTAVIS
     Route: 065
  4. ALFACALCIDOL [Suspect]
     Active Substance: ALFACALCIDOL
     Indication: Product used for unknown indication
     Route: 065
  5. SODIUM BICARBONATE [Suspect]
     Active Substance: SODIUM BICARBONATE
     Indication: Product used for unknown indication
     Route: 065
  6. PREDNISOLONE [Suspect]
     Active Substance: PREDNISOLONE
     Indication: Product used for unknown indication
     Route: 065
     Dates: start: 202504
  7. METOPROLOL [Suspect]
     Active Substance: METOPROLOL
     Indication: Product used for unknown indication
     Dosage: METOPROLOL TEVA
     Route: 065

REACTIONS (4)
  - Rash [Unknown]
  - Swollen tongue [Unknown]
  - Swelling face [Unknown]
  - Pharyngeal swelling [Unknown]

NARRATIVE: CASE EVENT DATE: 20250401
